FAERS Safety Report 10156585 (Version 1)
Quarter: 2014Q2

REPORT INFORMATION
  Report Type: Spontaneous
  Country: US (occurrence: None)
  Receive Date: 20140505
  Receipt Date: 20140505
  Transmission Date: 20141212
  Serious: Yes (Other)
  Sender: FDA-Public Use
  Company Number: SYM-2014-20262

PATIENT
  Age: 48 Year
  Sex: Female

DRUGS (5)
  1. FLAGYL (METRONIDAZOLE) (METRONIDAZOLE) [Suspect]
     Indication: GASTROINTESTINAL INFECTION
     Dates: start: 201403, end: 201403
  2. HUMIRA (ADALIMUMAB) (SOLUTION FOR INJECTION) [Suspect]
     Indication: COLITIS ULCERATIVE
     Dates: start: 201311
  3. IMURAN (AZATHIOPRINE) [Concomitant]
  4. CYMBALTA [Concomitant]
  5. PRILOSEC (OMEPRAZOLE) [Concomitant]

REACTIONS (9)
  - Diarrhoea haemorrhagic [None]
  - Gastrointestinal bacterial infection [None]
  - Skin sensitisation [None]
  - Injection site pain [None]
  - Drug ineffective [None]
  - Incorrect dose administered [None]
  - Wrong technique in drug usage process [None]
  - Injection site extravasation [None]
  - Confusional state [None]
